FAERS Safety Report 18735566 (Version 2)
Quarter: 2021Q1

REPORT INFORMATION
  Report Type: Spontaneous
  Country: PR (occurrence: PR)
  Receive Date: 20210113
  Receipt Date: 20210304
  Transmission Date: 20210419
  Serious: Yes (Death, Hospitalization)
  Sender: FDA-Public Use
  Company Number: PR-TEVA-2021-PR-1867446

PATIENT
  Age: 76 Year
  Sex: Female

DRUGS (2)
  1. METHYLPREDNISOLONE. [Suspect]
     Active Substance: METHYLPREDNISOLONE
     Indication: URTICARIA
     Dosage: SINGLE DOSE
     Route: 042
  2. METHYLPREDNISOLONE. [Suspect]
     Active Substance: METHYLPREDNISOLONE
     Indication: BRONCHOSPASM

REACTIONS (3)
  - Multiple organ dysfunction syndrome [Fatal]
  - Tumour lysis syndrome [Fatal]
  - Acute respiratory failure [Fatal]
